FAERS Safety Report 7901408-X (Version None)
Quarter: 2011Q4

REPORT INFORMATION
  Report Type: 
  Country: None (occurrence: None)
  Receive Date: 20111108
  Receipt Date: 20111103
  Transmission Date: 20120403
  Serious: Yes (Hospitalization, Other)
  Sender: FDA-Public Use
  Company Number: FR-PFIZER INC-2011269163

PATIENT
  Age: 67 Year
  Sex: Female

DRUGS (6)
  1. LOVENOX [Suspect]
     Dosage: UNK
     Route: 058
     Dates: start: 20110824, end: 20110906
  2. IMOVANE [Suspect]
     Dosage: UNK
     Route: 048
     Dates: start: 20110826, end: 20110906
  3. RIFADIN [Suspect]
     Dosage: 300 MG, 2X/DAY
     Route: 042
     Dates: start: 20110824, end: 20110922
  4. OFLOXACIN [Concomitant]
     Dosage: UNK
     Dates: start: 20110824, end: 20110831
  5. XANAX [Suspect]
     Dosage: UNK
     Route: 048
     Dates: start: 20110826, end: 20110906
  6. VANCOMYCIN [Suspect]
     Dosage: 2 G, 1X/DAY
     Route: 042
     Dates: start: 20110831, end: 20110922

REACTIONS (3)
  - CHOLESTASIS [None]
  - RENAL FAILURE [None]
  - DRUG RASH WITH EOSINOPHILIA AND SYSTEMIC SYMPTOMS [None]
